FAERS Safety Report 7229653-X (Version None)
Quarter: 2011Q1

REPORT INFORMATION
  Report Type: 
  Country: None (occurrence: None)
  Receive Date: 20110117
  Receipt Date: 20110107
  Transmission Date: 20110831
  Serious: Yes (Hospitalization)
  Sender: FDA-Public Use
  Company Number: PHHY2010JP76590

PATIENT
  Sex: Female

DRUGS (6)
  1. CRESTOR [Concomitant]
     Indication: HYPERCHOLESTEROLAEMIA
     Dosage: 2.5 MG, QD
     Route: 048
     Dates: start: 20090420
  2. FEMARA [Suspect]
     Indication: BREAST CANCER
     Dosage: 2.5 MG, DAILY
     Route: 048
     Dates: start: 20061113, end: 20101015
  3. EXEMESTANE [Concomitant]
     Dosage: UNK
     Route: 048
     Dates: start: 20041201, end: 20061112
  4. MEVALOTIN [Concomitant]
     Indication: HYPERCHOLESTEROLAEMIA
     Dosage: 10 MG, QD
     Route: 048
     Dates: start: 20070320, end: 20090419
  5. TAMOXIFEN CITRATE [Concomitant]
     Dosage: UNK
     Route: 048
     Dates: start: 20011120, end: 20041130
  6. MARZULENE [Concomitant]
     Indication: GASTRITIS
     Dosage: 1.5 MG, QD
     Route: 048
     Dates: start: 20080118

REACTIONS (6)
  - ERYTHEMA [None]
  - EMBOLISM VENOUS [None]
  - PAIN IN EXTREMITY [None]
  - OEDEMA PERIPHERAL [None]
  - BLOOD PRESSURE DECREASED [None]
  - SHOCK [None]
